FAERS Safety Report 4442510-7 (Version None)
Quarter: 2004Q3

REPORT INFORMATION
  Report Type: 
  Country: None (occurrence: None)
  Receive Date: 20040903
  Receipt Date: 20040712
  Transmission Date: 20050211
  Serious: Yes (Other)
  Sender: FDA-Public Use
  Company Number: 2004UW14363

PATIENT
  Age: 78 Year
  Sex: Female
  Weight: 74.8435 kg

DRUGS (6)
  1. CRESTOR [Suspect]
     Indication: HYPERCHOLESTEROLAEMIA
     Dosage: 10 MG PO
     Route: 048
  2. LASIX [Concomitant]
  3. ULTRAM [Concomitant]
  4. POTASSIUM [Concomitant]
  5. PAXIL [Concomitant]
  6. FOSAMAX [Concomitant]

REACTIONS (1)
  - DERMATITIS [None]
